FAERS Safety Report 20392839 (Version 1)
Quarter: 2022Q1

REPORT INFORMATION
  Report Type: Spontaneous
  Country: BR (occurrence: BR)
  Receive Date: 20220128
  Receipt Date: 20220128
  Transmission Date: 20220423
  Serious: Yes (Other)
  Sender: FDA-Public Use
  Company Number: BR-AMERICAN REGENT INC-2022000217

PATIENT

DRUGS (1)
  1. VENOFER [Suspect]
     Active Substance: IRON SUCROSE
     Indication: Product used for unknown indication
     Dosage: 3 AMPOULES (3 DOSAGE FORM), PER WEEK
     Route: 042

REACTIONS (3)
  - Neoplasm [Unknown]
  - Renal failure [Unknown]
  - Product availability issue [Unknown]
